FAERS Safety Report 6772173-7 (Version None)
Quarter: 2010Q2

REPORT INFORMATION
  Report Type: 
  Country: None (occurrence: None)
  Receive Date: 20100616
  Receipt Date: 20100520
  Transmission Date: 20101027
  Serious: Yes (Death, Hospitalization, Other)
  Sender: FDA-Public Use
  Company Number: PHEH2010US03377

PATIENT
  Sex: Male
  Weight: 74.43 kg

DRUGS (28)
  1. EXJADE [Suspect]
     Indication: LABORATORY TEST ABNORMAL
     Dosage: 1000 MG/ DAY
     Route: 048
     Dates: start: 20091106
  2. FLOMAX [Concomitant]
  3. ACETAMINOPHEN AND HYDROCODONE BITARTRATE [Concomitant]
  4. SERTRALINE HCL [Concomitant]
  5. ATENOLOL [Concomitant]
  6. MULTIVITAMIN ^LAPPE^ [Concomitant]
  7. ACYCLOVIR [Concomitant]
  8. VITAMIN B-12 [Concomitant]
  9. FINASTERIDE [Concomitant]
  10. LASIX [Concomitant]
  11. VITAMIN D [Concomitant]
  12. ANDROGEL [Concomitant]
  13. LEVAQUIN [Concomitant]
     Dosage: 750 MG, UNK
     Route: 042
  14. SPIRIVA [Concomitant]
  15. RANITIDINE [Concomitant]
  16. ROPINIROLE [Concomitant]
  17. AMOXICILLIN [Concomitant]
  18. DIGOXIN [Concomitant]
  19. PREDNISONE [Concomitant]
  20. COUMADIN [Concomitant]
  21. NASONEX [Concomitant]
  22. PREVACID [Concomitant]
  23. SENOKOT [Concomitant]
  24. LANOXIN [Concomitant]
  25. FRUSEMIDE [Concomitant]
  26. PROBIOTICS [Concomitant]
  27. ZOSYN [Concomitant]
     Dosage: 3.375 MG, UNK
     Route: 042
  28. DILTIAZEM [Concomitant]
     Dosage: 10 MG, UNK
     Route: 041

REACTIONS (28)
  - ATRIAL FIBRILLATION [None]
  - BLOOD BILIRUBIN INCREASED [None]
  - BODY TEMPERATURE INCREASED [None]
  - BONE MARROW FAILURE [None]
  - CARDIAC FAILURE [None]
  - CHAPPED LIPS [None]
  - DYSPNOEA [None]
  - ENDOCARDITIS [None]
  - FATIGUE [None]
  - HAEMOGLOBIN DECREASED [None]
  - HEARING IMPAIRED [None]
  - HEART RATE IRREGULAR [None]
  - HYPOTENSION [None]
  - INFECTION [None]
  - LIVEDO RETICULARIS [None]
  - MUCOUS MEMBRANE DISORDER [None]
  - NERVOUS SYSTEM DISORDER [None]
  - OEDEMA PERIPHERAL [None]
  - ORAL CANDIDIASIS [None]
  - PALPITATIONS [None]
  - PERIODONTAL DISEASE [None]
  - PULSE ABNORMAL [None]
  - RESPIRATORY RATE INCREASED [None]
  - RHONCHI [None]
  - SEPSIS [None]
  - TACHYCARDIA [None]
  - TONGUE ATROPHY [None]
  - WALDENSTROM'S MACROGLOBULINAEMIA [None]
